FAERS Safety Report 7481026-0 (Version None)
Quarter: 2011Q2

REPORT INFORMATION
  Report Type: 
  Country: None (occurrence: None)
  Receive Date: 20110516
  Receipt Date: 20110509
  Transmission Date: 20111010
  Serious: Yes (Death)
  Sender: FDA-Public Use
  Company Number: US-BRISTOL-MYERS SQUIBB COMPANY-15729080

PATIENT
  Age: 78 Year
  Sex: Female

DRUGS (2)
  1. COUMADIN [Suspect]
     Dosage: 1 DF = COUMADIN 1 MG ONE AND A HALF TABLET.
  2. SEROQUEL [Concomitant]

REACTIONS (3)
  - HYPOTENSION [None]
  - HAEMORRHAGE INTRACRANIAL [None]
  - INTRACRANIAL ANEURYSM [None]
